FAERS Safety Report 7818055-0 (Version None)
Quarter: 2011Q4

REPORT INFORMATION
  Report Type: 
  Country: None (occurrence: None)
  Receive Date: 20111017
  Receipt Date: 20111012
  Transmission Date: 20120403
  Serious: Yes (Other)
  Sender: FDA-Public Use
  Company Number: PH-PFIZER INC-2011244173

PATIENT
  Sex: Female

DRUGS (1)
  1. XALATAN [Suspect]
     Dosage: UNKNOWN

REACTIONS (4)
  - RESPIRATORY DISORDER [None]
  - PRURITUS [None]
  - URTICARIA [None]
  - OCULAR HYPERAEMIA [None]
